FAERS Safety Report 5722139-0 (Version None)
Quarter: 2008Q2

REPORT INFORMATION
  Report Type: 
  Country: None (occurrence: None)
  Receive Date: 20080429
  Receipt Date: 20080221
  Transmission Date: 20081010
  Serious: No
  Sender: FDA-Public Use
  Company Number: US-ASTRAZENECA-2007UW13165

PATIENT
  Age: 63 Year
  Sex: Male
  Weight: 90.7 kg

DRUGS (7)
  1. NEXIUM [Suspect]
     Indication: GASTROOESOPHAGEAL REFLUX DISEASE
     Route: 048
  2. NEXIUM [Suspect]
     Indication: EROSIVE OESOPHAGITIS
     Route: 048
  3. NEXIUM [Suspect]
     Route: 048
  4. NEXIUM [Suspect]
     Route: 048
  5. BROMOCRIPTINE MESYLATE [Concomitant]
  6. THYROID TAB [Concomitant]
  7. RANITIDINE [Concomitant]

REACTIONS (3)
  - BURNING SENSATION [None]
  - CONSTIPATION [None]
  - NAUSEA [None]
